FAERS Safety Report 6970628-3 (Version None)
Quarter: 2010Q3

REPORT INFORMATION
  Report Type: 
  Country: None (occurrence: None)
  Receive Date: 20100908
  Receipt Date: 20100830
  Transmission Date: 20110219
  Serious: Yes (Hospitalization, Other)
  Sender: FDA-Public Use
  Company Number: PHHY2010CA48269

PATIENT
  Sex: Male

DRUGS (2)
  1. SANDOSTATIN LAR [Suspect]
     Indication: GASTRIC CANCER
     Dosage: 30 MG EVERY 4 WEEKS
     Route: 030
     Dates: start: 20100213
  2. CHEMOTHERAPEUTICS NOS [Concomitant]

REACTIONS (5)
  - ASTHENIA [None]
  - DECREASED APPETITE [None]
  - DEHYDRATION [None]
  - PALLIATIVE CARE [None]
  - VOMITING [None]
